FAERS Safety Report 21368780 (Version 4)
Quarter: 2024Q1

REPORT INFORMATION
  Report Type: Report from Study
  Country: US (occurrence: US)
  Receive Date: 20220923
  Receipt Date: 20240308
  Transmission Date: 20240409
  Serious: Yes (Other)
  Sender: FDA-Public Use
  Company Number: US-UCBSA-2022055377

PATIENT
  Age: 34 Year
  Sex: Female
  Weight: 84 kg

DRUGS (13)
  1. CERTOLIZUMAB PEGOL [Suspect]
     Active Substance: CERTOLIZUMAB PEGOL
     Indication: Psoriasis
     Dosage: 400 MILLIGRAM, EV 2 MONTHS
     Route: 058
     Dates: start: 20210601, end: 20220623
  2. CERTOLIZUMAB PEGOL [Suspect]
     Active Substance: CERTOLIZUMAB PEGOL
     Indication: Psoriatic arthropathy
  3. DIETARY SUPPLEMENT [Concomitant]
     Active Substance: DIETARY SUPPLEMENT
     Indication: Product used for unknown indication
     Dosage: UNK
  4. COENZYME Q10 [Concomitant]
     Active Substance: DIETARY SUPPLEMENT\UBIDECARENONE
     Indication: Pregnancy
     Dosage: 300 MILLIGRAM, 1 DAY
     Route: 048
     Dates: start: 20220531, end: 20220623
  5. CORTICOSTEROID NOS [Concomitant]
     Active Substance: CORTICOSTEROID NOS
     Indication: Psoriasis
     Dosage: UNK, TOPICAL-FACE, SCALP AND/OR SKIN; FREQUENCY : 3 MONTH
     Dates: start: 20150101, end: 20220315
  6. DOVONEX [Concomitant]
     Active Substance: CALCIPOTRIENE
     Indication: Psoriasis
     Dosage: UNK, TOPICAL-FACE, SCALP AND/OR SKIN (FREQUENCY: 3 WEEK)
     Dates: start: 20150101, end: 20220504
  7. DOVONEX [Concomitant]
     Active Substance: CALCIPOTRIENE
     Dosage: UNK, TOPICAL-FACE, SCALP AND/OR SKIN, (FREQUENCY:1 DAY)
     Dates: start: 20220515, end: 20220515
  8. FISH OIL [Concomitant]
     Active Substance: FISH OIL
     Indication: Pregnancy
     Dosage: 2000 MILLIGRAM, 1 DAY
     Route: 048
     Dates: start: 20220407, end: 20220623
  9. FISH OIL [Concomitant]
     Active Substance: FISH OIL
     Indication: Nutritional supplementation
  10. MINERALS\VITAMINS [Concomitant]
     Active Substance: MINERALS\VITAMINS
     Indication: Product used for unknown indication
     Dosage: 1 PILL, 1 DAY
     Route: 048
     Dates: start: 20210915, end: 20220623
  11. ANALGESIC [BENZOCAINE;PHENAZONE] [Concomitant]
     Indication: Product used for unknown indication
     Dosage: UNK
  12. SALICYLIC ACID [Concomitant]
     Active Substance: SALICYLIC ACID
     Indication: Psoriasis
     Dosage: (2.5 DAY), TOPICAL-FACE, SCALP AND/OR SKIN
     Dates: start: 20220407, end: 20220623
  13. MODERNA COVID-19 VACCINE [Concomitant]
     Active Substance: ELASOMERAN
     Indication: COVID-19 immunisation
     Dosage: 1 SHOT, 1 DAY (DOSE 3)
     Route: 030
     Dates: start: 20210817, end: 20210817

REACTIONS (8)
  - Abortion spontaneous [Unknown]
  - Uterine dilation and curettage [Unknown]
  - Ovarian cyst [Unknown]
  - Coronavirus infection [Recovered/Resolved]
  - Maternal exposure before pregnancy [Unknown]
  - Maternal exposure during pregnancy [Unknown]
  - Off label use [Unknown]
  - COVID-19 immunisation [Unknown]

NARRATIVE: CASE EVENT DATE: 20210601
